FAERS Safety Report 10163614 (Version 1)
Quarter: 2014Q2

REPORT INFORMATION
  Report Type: Report from Study
  Country: NZ (occurrence: NZ)
  Receive Date: 20140509
  Receipt Date: 20140509
  Transmission Date: 20141212
  Serious: Yes (Other)
  Sender: FDA-Public Use
  Company Number: PHHY2014NZ056541

PATIENT
  Sex: Female

DRUGS (2)
  1. CLOZARIL [Suspect]
     Dosage: UNK UKN, UNK
     Dates: start: 20140319
  2. METHADONE [Suspect]
     Dosage: UNK UKN, UNK

REACTIONS (2)
  - Respiratory arrest [Unknown]
  - Drug intolerance [Unknown]
